FAERS Safety Report 24964972 (Version 2)
Quarter: 2025Q3

REPORT INFORMATION
  Report Type: Spontaneous
  Country: EG (occurrence: EG)
  Receive Date: 20250213
  Receipt Date: 20250827
  Transmission Date: 20251020
  Serious: Yes (Death, Hospitalization)
  Sender: PFIZER
  Company Number: EG-PFIZER INC-PV202500015910

PATIENT
  Age: 73 Year
  Sex: Female

DRUGS (2)
  1. IBRANCE [Suspect]
     Active Substance: PALBOCICLIB
     Indication: Breast cancer metastatic
     Dosage: ONE TAB DAILY FOR 21 DAYS AND ONE WEEK REST
     Route: 048
     Dates: start: 20200905, end: 20240422
  2. XGEVA [Concomitant]
     Active Substance: DENOSUMAB
     Route: 058

REACTIONS (3)
  - Death [Fatal]
  - Second primary malignancy [Unknown]
  - Pancreatic carcinoma [Unknown]

NARRATIVE: CASE EVENT DATE: 20250217
